FAERS Safety Report 5154830-1 (Version None)
Quarter: 2006Q4

REPORT INFORMATION
  Report Type: 
  Country: None (occurrence: None)
  Receive Date: 20061121
  Receipt Date: 20061114
  Transmission Date: 20070319
  Serious: Yes (Hospitalization)
  Sender: FDA-Public Use
  Company Number: US-JNJFOC-20061103811

PATIENT
  Age: 82 Year
  Sex: Male
  Weight: 74.84 kg

DRUGS (8)
  1. TRAMADOL HCL [Suspect]
     Indication: ARTHRALGIA
     Route: 048
  2. ALTACE [Concomitant]
     Indication: HYPERTENSION
     Route: 048
  3. ACTOS [Concomitant]
     Indication: DIABETES MELLITUS
     Route: 048
  4. TOPROL-XL [Concomitant]
     Indication: HYPERTENSION
     Route: 048
  5. MECLIZINE [Concomitant]
     Indication: DIZZINESS
     Route: 048
  6. MECLIZINE [Concomitant]
     Indication: HEADACHE
     Route: 048
  7. NEXIUM [Concomitant]
     Indication: GASTROOESOPHAGEAL REFLUX DISEASE
     Route: 048
  8. LIAQUIN [Concomitant]
     Indication: ASTHMA

REACTIONS (2)
  - ASTHMA [None]
  - DRUG INEFFECTIVE [None]
